FAERS Safety Report 6996967-8 (Version None)
Quarter: 2010Q3

REPORT INFORMATION
  Report Type: 
  Country: None (occurrence: None)
  Receive Date: 20100918
  Receipt Date: 20091008
  Transmission Date: 20110219
  Serious: No
  Sender: FDA-Public Use
  Company Number: US-WYE-H10791909

PATIENT
  Sex: Female
  Weight: 49.94 kg

DRUGS (3)
  1. PREMPRO [Suspect]
     Indication: HORMONE THERAPY
     Dosage: 0.625 MG/ 2.5 MG (FREQUENCY UNKNOWN)
     Route: 048
     Dates: start: 19960101
  2. PREMPRO [Suspect]
     Dosage: 0.3 MG/ 1.5 MG (TAKES 2 DAYS, SKIPS A DAY, TAKES FOR 2 DAYS
     Route: 048
  3. VITAMINS [Concomitant]

REACTIONS (2)
  - PAIN IN EXTREMITY [None]
  - SENSATION OF HEAVINESS [None]
